FAERS Safety Report 12036999 (Version 1)
Quarter: 2016Q1

REPORT INFORMATION
  Report Type: Spontaneous
  Country: US (occurrence: None)
  Receive Date: 20160205
  Receipt Date: 20160205
  Transmission Date: 20160526
  Serious: Yes (Disabling)
  Sender: FDA-Public Use
  Company Number: None

PATIENT
  Age: 67 Year
  Sex: Female
  Weight: 90.72 kg

DRUGS (6)
  1. KRILL OIL [Concomitant]
     Active Substance: DIETARY SUPPLEMENT
  2. TIMOLOL. [Suspect]
     Active Substance: TIMOLOL
     Indication: GLAUCOMA
     Dosage: 1 DROP  INTO THE EYE
     Route: 047
  3. CALCIUM [Concomitant]
     Active Substance: CALCIUM
  4. MVI [Concomitant]
     Active Substance: VITAMINS
  5. ZYFLAMEND [Concomitant]
  6. VITAMIN D [Concomitant]
     Active Substance: CHOLECALCIFEROL

REACTIONS (6)
  - Rash [None]
  - Pruritus [None]
  - Eyelid oedema [None]
  - Lip swelling [None]
  - Eyelids pruritus [None]
  - Reaction to preservatives [None]
